FAERS Safety Report 25062552 (Version 1)
Quarter: 2025Q1

REPORT INFORMATION
  Report Type: Report from Study
  Country: BR (occurrence: BR)
  Receive Date: 20250311
  Receipt Date: 20250311
  Transmission Date: 20250408
  Serious: Yes (Other)
  Sender: TEVA
  Company Number: BR-TEVA-VS-3307338

PATIENT

DRUGS (1)
  1. METHOTREXATE [Suspect]
     Active Substance: METHOTREXATE
     Indication: Pyoderma gangrenosum
     Route: 065

REACTIONS (2)
  - Extrapulmonary tuberculosis [Unknown]
  - Joint tuberculosis [Unknown]
